FAERS Safety Report 7258578-9 (Version None)
Quarter: 2011Q1

REPORT INFORMATION
  Report Type: 
  Country: None (occurrence: None)
  Receive Date: 20110129
  Receipt Date: 20100502
  Transmission Date: 20110831
  Serious: No
  Sender: FDA-Public Use
  Company Number: US-ABBOTT-08P-163-0467701-00

PATIENT
  Sex: Female
  Weight: 94.886 kg

DRUGS (14)
  1. HUMIRA [Suspect]
     Indication: CROHN'S DISEASE
     Route: 058
     Dates: start: 20080701
  2. METHOTREXATE [Concomitant]
     Indication: CROHN'S DISEASE
     Route: 048
     Dates: start: 20080601
  3. VIT B 12 [Concomitant]
     Indication: CROHN'S DISEASE
     Route: 048
  4. HUMIRA [Suspect]
  5. FLAGYL [Concomitant]
     Indication: CROHN'S DISEASE
     Route: 048
     Dates: start: 20070101
  6. FISH OIL OMEGA 3 [Concomitant]
     Indication: CROHN'S DISEASE
     Route: 048
  7. CA/400 VIT D [Concomitant]
     Indication: CROHN'S DISEASE
     Route: 048
  8. METHOTREXATE [Concomitant]
     Dates: start: 20080601
  9. HUMIRA [Suspect]
  10. OMEPRAVOLE [Concomitant]
     Indication: CROHN'S DISEASE
     Route: 048
     Dates: start: 20070101
  11. IBEUPROPHEN [Concomitant]
     Indication: PAIN
     Dosage: 3 - 4 X /DAY AS NEEDED
     Route: 048
  12. CIPRO [Concomitant]
     Indication: CROHN'S DISEASE
     Route: 048
     Dates: start: 20070101
  13. VITAMIN B COMPLEX CAP [Concomitant]
     Indication: CROHN'S DISEASE
     Route: 048
  14. VIT C [Concomitant]
     Indication: CROHN'S DISEASE
     Route: 048

REACTIONS (1)
  - HYPOAESTHESIA [None]
